FAERS Safety Report 8079138-6 (Version None)
Quarter: 2012Q1

REPORT INFORMATION
  Report Type: 
  Country: None (occurrence: None)
  Receive Date: 20120128
  Receipt Date: 20110818
  Transmission Date: 20120608
  Serious: No
  Sender: FDA-Public Use
  Company Number: US-ABBOTT-11P-163-0848034-00

PATIENT
  Age: 32 Year
  Sex: Female

DRUGS (5)
  1. UNKNOWN INHALERS [Concomitant]
     Indication: ASTHMA
  2. CALCIUM +VIT D [Concomitant]
     Indication: CALCIUM DEFICIENCY
  3. HUMIRA [Suspect]
     Indication: ANKYLOSING SPONDYLITIS
     Dates: start: 20100801
  4. OXYCODONE HCL [Concomitant]
     Indication: ANKYLOSING SPONDYLITIS
  5. CALCIUM +VIT D [Concomitant]
     Indication: PROPHYLAXIS
     Dosage: DAILY

REACTIONS (6)
  - DYSPNOEA [None]
  - BRONCHITIS [None]
  - CHEST DISCOMFORT [None]
  - COUGH [None]
  - OROPHARYNGEAL PAIN [None]
  - INAPPROPRIATE SCHEDULE OF DRUG ADMINISTRATION [None]
